FAERS Safety Report 7241099-7 (Version None)
Quarter: 2011Q1

REPORT INFORMATION
  Report Type: 
  Country: None (occurrence: None)
  Receive Date: 20110124
  Receipt Date: 20110113
  Transmission Date: 20110831
  Serious: Yes (Other)
  Sender: FDA-Public Use
  Company Number: JP-PFIZER INC-2011015071

PATIENT
  Age: 15 Year
  Sex: Female

DRUGS (2)
  1. PROGRAF [Concomitant]
     Dosage: UNK
  2. CELECOXIB [Suspect]
     Indication: BACK PAIN
     Dosage: 100 MG, 1X/DAY
     Route: 048
     Dates: start: 20101201, end: 20101201

REACTIONS (2)
  - CONVULSION [None]
  - GASTROENTERITIS NOROVIRUS [None]
